FAERS Safety Report 8574595-0 (Version None)
Quarter: 2012Q3

REPORT INFORMATION
  Report Type: 
  Country: None (occurrence: None)
  Receive Date: 20120806
  Receipt Date: 20120724
  Transmission Date: 20120928
  Serious: Yes (Hospitalization)
  Sender: FDA-Public Use
  Company Number: CN-MYLANLABS-2012S1015659

PATIENT
  Sex: Male

DRUGS (2)
  1. CLOZAPINE [Suspect]
     Indication: MENTAL DISORDER
     Route: 064
  2. HALOPERIDOL [Suspect]
     Indication: MENTAL DISORDER
     Route: 064

REACTIONS (3)
  - DRUG WITHDRAWAL SYNDROME NEONATAL [None]
  - DRUG WITHDRAWAL CONVULSIONS [None]
  - FOETAL EXPOSURE DURING PREGNANCY [None]
